FAERS Safety Report 14673030 (Version 1)
Quarter: 2018Q1

REPORT INFORMATION
  Report Type: Spontaneous
  Country: JP (occurrence: JP)
  Receive Date: 20180323
  Receipt Date: 20180323
  Transmission Date: 20180509
  Serious: Yes (Death, Hospitalization, Other)
  Sender: FDA-Public Use
  Company Number: JP-UNITED THERAPEUTICS-UNT-2017-004946

PATIENT
  Age: 33 Year
  Sex: Male
  Weight: 67 kg

DRUGS (12)
  1. ADCIRCA [Concomitant]
     Active Substance: TADALAFIL
     Indication: PULMONARY ARTERIAL HYPERTENSION
     Dosage: 40 MG, UNK
     Route: 048
     Dates: start: 20101015
  2. PIMOBENDAN [Concomitant]
     Active Substance: PIMOBENDAN
     Indication: CARDIAC FAILURE
     Dosage: 2.5 MG, BID
     Route: 048
  3. MILRINONE [Concomitant]
     Active Substance: MILRINONE
     Indication: RIGHT VENTRICULAR FAILURE
     Dosage: UNK
     Route: 041
     Dates: start: 20151123, end: 20151201
  4. LANIRAPID [Concomitant]
     Active Substance: METILDIGOXIN
     Indication: RIGHT VENTRICULAR FAILURE
     Dosage: UNK
     Route: 048
  5. FUROSEMIDE. [Concomitant]
     Active Substance: FUROSEMIDE
     Indication: RIGHT VENTRICULAR FAILURE
     Dosage: UNK
     Route: 065
  6. VOLIBRIS [Concomitant]
     Active Substance: AMBRISENTAN
     Indication: PULMONARY ARTERIAL HYPERTENSION
     Dosage: 10 MG, UNK
     Route: 048
     Dates: start: 20110707
  7. SPIRONOLACTONE. [Concomitant]
     Active Substance: SPIRONOLACTONE
     Indication: RIGHT VENTRICULAR FAILURE
     Dosage: UNK
     Route: 048
  8. CARELOAD [Concomitant]
     Active Substance: BERAPROST SODIUM
     Indication: PULMONARY ARTERIAL HYPERTENSION
     Dosage: 240 ?G, UNK
     Route: 048
     Dates: start: 20101029
  9. NORADRENALINE                      /00127501/ [Concomitant]
     Active Substance: NOREPINEPHRINE
     Indication: CARDIOGENIC SHOCK
     Dosage: UNK
     Route: 041
     Dates: start: 20151123, end: 20151129
  10. REMODULIN [Suspect]
     Active Substance: TREPROSTINIL
     Indication: PULMONARY ARTERIAL HYPERTENSION
     Dosage: 0.00129 ?G/KG, CONTINUING
     Route: 041
     Dates: start: 20151117, end: 20151122
  11. REMODULIN [Suspect]
     Active Substance: TREPROSTINIL
     Dosage: 0.00375 ?G/KG, CONTINUING
     Route: 041
     Dates: start: 20151127, end: 20151201
  12. DOBUTAMINE HYDROCHLORIDE. [Concomitant]
     Active Substance: DOBUTAMINE HYDROCHLORIDE
     Indication: RIGHT VENTRICULAR FAILURE
     Dosage: UNK
     Route: 041
     Dates: start: 20151117, end: 20151201

REACTIONS (5)
  - Disseminated intravascular coagulation [Fatal]
  - Hypoxia [Not Recovered/Not Resolved]
  - Multiple organ dysfunction syndrome [Unknown]
  - Procedural complication [Unknown]
  - Pulmonary capillary haemangiomatosis [Unknown]

NARRATIVE: CASE EVENT DATE: 20151122
